FAERS Safety Report 23116566 (Version 3)
Quarter: 2025Q1

REPORT INFORMATION
  Report Type: Spontaneous
  Country: US (occurrence: US)
  Receive Date: 20231027
  Receipt Date: 20250325
  Transmission Date: 20250409
  Serious: No
  Sender: BIOGEN
  Company Number: US-BIOGEN-2023BI01232418

PATIENT
  Age: 44 Year
  Sex: Male

DRUGS (1)
  1. QALSODY [Suspect]
     Active Substance: TOFERSEN
     Indication: Product used for unknown indication
     Route: 050

REACTIONS (7)
  - Procedural pain [Not Recovered/Not Resolved]
  - Dysstasia [Unknown]
  - Gait disturbance [Unknown]
  - Mobility decreased [Unknown]
  - Pain [Unknown]
  - Fatigue [Unknown]
  - Radiculopathy [Not Recovered/Not Resolved]

NARRATIVE: CASE EVENT DATE: 20231017
